FAERS Safety Report 5627377-3 (Version None)
Quarter: 2008Q1

REPORT INFORMATION
  Report Type: 
  Country: None (occurrence: None)
  Receive Date: 20080215
  Receipt Date: 20080213
  Transmission Date: 20080703
  Serious: Yes (Hospitalization)
  Sender: FDA-Public Use
  Company Number: IT-BAYER-IT-2007-022945

PATIENT
  Age: 71 Year
  Sex: Female

DRUGS (1)
  1. ULTRAVIST 370 [Suspect]
     Indication: COMPUTERISED TOMOGRAM
     Dosage: UNIT DOSE: 130 ML
     Route: 042
     Dates: start: 20070613, end: 20070613

REACTIONS (4)
  - CYANOSIS [None]
  - HYPOTENSION [None]
  - PROCEDURAL VOMITING [None]
  - VASODILATATION [None]
